FAERS Safety Report 7672680-9 (Version None)
Quarter: 2011Q3

REPORT INFORMATION
  Report Type: 
  Country: None (occurrence: None)
  Receive Date: 20110804
  Receipt Date: 20110721
  Transmission Date: 20111222
  Serious: Yes (Life-Threatening, Hospitalization)
  Sender: FDA-Public Use
  Company Number: TCI2011A03797

PATIENT
  Age: 60 Year
  Sex: Male

DRUGS (5)
  1. LANSOPRAZOLE [Concomitant]
  2. ACTOS [Suspect]
     Indication: DIABETES MELLITUS
     Dosage: 15 MG (15 MG, 1 IN 1 D), PER ORAL
     Route: 048
     Dates: start: 20070705, end: 20110712
  3. PLAVIX [Concomitant]
  4. GLIMICRON (GLICLAZIDE) [Concomitant]
  5. ASPIRIN [Concomitant]

REACTIONS (2)
  - HAEMATURIA [None]
  - BLADDER CANCER [None]
